FAERS Safety Report 19810199 (Version 3)
Quarter: 2021Q4

REPORT INFORMATION
  Report Type: Spontaneous
  Country: US (occurrence: US)
  Receive Date: 20210909
  Receipt Date: 20211020
  Transmission Date: 20220303
  Serious: Yes (Other)
  Sender: FDA-Public Use
  Company Number: US-JNJFOC-20210910563

PATIENT
  Sex: Female

DRUGS (1)
  1. NEUTROGENA ULTRA SHEER BODY MIST SUNSCRN BR?D SPECT SPF 30 (AV\HOM\OCT [Suspect]
     Active Substance: AVOBENZONE\HOMOSALATE\OCTISALATE\OCTOCRYLENE\OXYBENZONE
     Indication: Prophylaxis against solar radiation
     Dosage: SHE WOULD SPRAY IT EVENLY ON HER. ONLY DURING THE SUMMER MONTHS. THREE TO FOUR TIMES A DAY. STARTED
     Route: 061

REACTIONS (1)
  - Squamous cell carcinoma [Recovered/Resolved]
